FAERS Safety Report 15667438 (Version 1)
Quarter: 2018Q4

REPORT INFORMATION
  Report Type: Spontaneous
  Country: DE (occurrence: DE)
  Receive Date: 20181128
  Receipt Date: 20181128
  Transmission Date: 20190205
  Serious: Yes (Other)
  Sender: FDA-Public Use
  Company Number: DE-PFIZER INC-2018487153

PATIENT
  Age: 84 Year
  Sex: Male

DRUGS (8)
  1. RAMIPRIL. [Suspect]
     Active Substance: RAMIPRIL
     Dosage: UNK
     Route: 048
  2. PROPRANOLOL HYDROCHLORIDE. [Suspect]
     Active Substance: PROPRANOLOL HYDROCHLORIDE
     Dosage: 50 MG, UNK
  3. MELPERONE [Suspect]
     Active Substance: MELPERONE
     Dosage: UNK, AS NEEDED (UP TO 2X25 MG)
  4. ACETYLSALICYLIC ACID [Suspect]
     Active Substance: ASPIRIN
     Dosage: UNK
     Route: 048
  5. SERTRALINE HCL [Suspect]
     Active Substance: SERTRALINE HYDROCHLORIDE
     Dosage: UNK
     Route: 065
  6. SIMVASTATIN. [Suspect]
     Active Substance: SIMVASTATIN
     Dosage: UNK
  7. RISPERIDONE. [Suspect]
     Active Substance: RISPERIDONE
     Dosage: UNK
  8. FOLIC ACID. [Suspect]
     Active Substance: FOLIC ACID
     Dosage: UNK

REACTIONS (2)
  - Fall [Unknown]
  - Seizure [Unknown]

NARRATIVE: CASE EVENT DATE: 20160919
